FAERS Safety Report 9753141 (Version 1)
Quarter: 2013Q4

REPORT INFORMATION
  Report Type: Spontaneous
  Country: US (occurrence: US)
  Receive Date: 20131213
  Receipt Date: 20131213
  Transmission Date: 20140711
  Serious: No
  Sender: FDA-Public Use
  Company Number: US-GILEAD-2010-0026489

PATIENT
  Sex: Male
  Weight: 77.11 kg

DRUGS (20)
  1. LETAIRIS [Suspect]
     Indication: PULMONARY ARTERIAL HYPERTENSION
     Route: 048
     Dates: start: 20091016
  2. REVATIO [Concomitant]
  3. VENTAVIS [Concomitant]
  4. JANTOVEN [Concomitant]
  5. PLAVIX [Concomitant]
  6. ASPIRIN [Concomitant]
  7. LISINOPRIL [Concomitant]
  8. CARDURA [Concomitant]
  9. FINASTERIDE [Concomitant]
  10. SPIRIVA [Concomitant]
  11. VICODIN [Concomitant]
  12. PRILOSEC [Concomitant]
  13. TESTOSTERONE PATCH [Concomitant]
  14. PREDNISONE [Concomitant]
  15. FORTEO [Concomitant]
  16. ZOCOR [Concomitant]
  17. CITALOPRAM [Concomitant]
  18. LUNESTA [Concomitant]
  19. ADVANCED CALCIUM [Concomitant]
  20. MULTIVITAMINS [Concomitant]

REACTIONS (1)
  - Nasal congestion [Unknown]
